FAERS Safety Report 6458148-6 (Version None)
Quarter: 2009Q4

REPORT INFORMATION
  Report Type: 
  Country: None (occurrence: None)
  Receive Date: 20091125
  Receipt Date: 20091120
  Transmission Date: 20100525
  Serious: Yes (Disabling)
  Sender: FDA-Public Use
  Company Number: US-GENENTECH-294818

PATIENT
  Age: 51 Year
  Sex: Male

DRUGS (1)
  1. RITUXAN [Suspect]
     Indication: RHEUMATOID ARTHRITIS

REACTIONS (3)
  - AMNESIA [None]
  - ENCEPHALITIS [None]
  - NEUROLOGICAL SYMPTOM [None]
